FAERS Safety Report 21891961 (Version 1)
Quarter: 2023Q1

REPORT INFORMATION
  Report Type: Report from Study
  Country: ES (occurrence: ES)
  Receive Date: 20230120
  Receipt Date: 20230120
  Transmission Date: 20230418
  Serious: Yes (Death)
  Sender: FDA-Public Use
  Company Number: ES-INCYTE CORPORATION-2022IN010341

PATIENT
  Age: 84 Year
  Sex: Male
  Weight: 79 kg

DRUGS (2)
  1. LENALIDOMIDE [Suspect]
     Active Substance: LENALIDOMIDE
     Indication: Non-Hodgkin^s lymphoma
     Dosage: 15 MILLIGRAM, QD (15 MILLIGRAM DAILY)
     Route: 048
     Dates: start: 20220504
  2. TAFASITAMAB [Suspect]
     Active Substance: TAFASITAMAB
     Indication: Non-Hodgkin^s lymphoma
     Dosage: 12 MG/KG(950MG)(D-1,4,8,15 +22 OF CYC 1/PROTOCOL)
     Route: 042
     Dates: start: 20220504, end: 20220511

REACTIONS (1)
  - Pneumonia [Fatal]

NARRATIVE: CASE EVENT DATE: 20220517
